FAERS Safety Report 7615801-6 (Version None)
Quarter: 2011Q3

REPORT INFORMATION
  Report Type: 
  Country: None (occurrence: None)
  Receive Date: 20110718
  Receipt Date: 20110718
  Transmission Date: 20111222
  Serious: Yes (Hospitalization)
  Sender: FDA-Public Use
  Company Number: None

PATIENT
  Age: 72 Year
  Sex: Male
  Weight: 117.7 kg

DRUGS (1)
  1. PHENYLEPHRINE HCL [Suspect]
     Indication: NASOPHARYNGITIS
     Dosage: 10 MG ONCE PO
     Route: 048
     Dates: start: 20110612, end: 20110612

REACTIONS (1)
  - PALPITATIONS [None]
